FAERS Safety Report 7690561-1 (Version None)
Quarter: 2011Q3

REPORT INFORMATION
  Report Type: 
  Country: None (occurrence: None)
  Receive Date: 20110818
  Receipt Date: 20110809
  Transmission Date: 20111222
  Serious: Yes (Other)
  Sender: FDA-Public Use
  Company Number: US-BAYER-201040343NA

PATIENT
  Age: 31 Year
  Sex: Female
  Weight: 99 kg

DRUGS (9)
  1. ASTHMA/BREATHING MEDICATIONS [Concomitant]
  2. YASMIN [Suspect]
     Indication: ORAL CONTRACEPTION
     Dosage: UNK UNK, UNK
     Route: 048
     Dates: start: 20050601, end: 20060101
  3. CITALOPRAM HYDROBROMIDE [Concomitant]
     Dosage: 20 MG, UNK
     Dates: start: 20060729, end: 20070726
  4. ASCORBIC ACID (VIT C), INCL COMBINATIONS [Concomitant]
  5. ANTIBIOTICS [Concomitant]
  6. ADVIL LIQUI-GELS [Concomitant]
  7. MOTRIN [Concomitant]
  8. HYDROCHLOROTHIAZIDE [Concomitant]
     Indication: HYPERTENSION
     Dosage: 25 MG, UNK
     Dates: start: 20050608, end: 20061103
  9. TYLENOL-500 [Concomitant]

REACTIONS (3)
  - GALLBLADDER DISORDER [None]
  - RETCHING [None]
  - ABDOMINAL PAIN LOWER [None]
